FAERS Safety Report 8136227-5 (Version None)
Quarter: 2012Q1

REPORT INFORMATION
  Report Type: 
  Country: None (occurrence: None)
  Receive Date: 20120210
  Receipt Date: 20120201
  Transmission Date: 20120608
  Serious: Yes (Death, Hospitalization)
  Sender: FDA-Public Use
  Company Number: 2009SP008210

PATIENT
  Age: 62 Year
  Sex: Male
  Weight: 76 kg

DRUGS (15)
  1. CEFOTIAM HYDROCHLORIDE [Concomitant]
  2. IMIPENEM AND CILASTATIN SODIUM [Concomitant]
  3. LENDORMIN D [Concomitant]
  4. MP-424  (INVESTIGATIONAL DRUG) [Suspect]
     Indication: HEPATITIS C
     Dosage: 2250 MG;QD;PO
     Route: 048
     Dates: start: 20090203, end: 20090417
  5. LOXONIN [Concomitant]
  6. LEVOFLOXACIN [Concomitant]
  7. RIBAVIRIN [Suspect]
     Indication: HEPATITIS C
     Dosage: 800 MG;QD;PO 600 MG;QD;PO 400 MG;QD;PO 200 MG;QD;PO
     Route: 048
     Dates: start: 20090420, end: 20090425
  8. RIBAVIRIN [Suspect]
     Indication: HEPATITIS C
     Dosage: 800 MG;QD;PO 600 MG;QD;PO 400 MG;QD;PO 200 MG;QD;PO
     Route: 048
     Dates: start: 20090213, end: 20090419
  9. RIBAVIRIN [Suspect]
     Indication: HEPATITIS C
     Dosage: 800 MG;QD;PO 600 MG;QD;PO 400 MG;QD;PO 200 MG;QD;PO
     Route: 048
     Dates: start: 20090203, end: 20090223
  10. RIBAVIRIN [Suspect]
     Indication: HEPATITIS C
     Dosage: 800 MG;QD;PO 600 MG;QD;PO 400 MG;QD;PO 200 MG;QD;PO
     Route: 048
     Dates: start: 20090224, end: 20090309
  11. SELBEX [Concomitant]
  12. HARNAL D [Concomitant]
  13. CERNILTON (CERNITIN POLLEN EXTRACT) [Concomitant]
  14. SOLDEM 3A [Concomitant]
  15. PEG-INTRON [Suspect]
     Indication: HEPATITIS C
     Dosage: 120 MCG;QW;SC
     Route: 058
     Dates: start: 20090203, end: 20090422

REACTIONS (21)
  - PYREXIA [None]
  - INFECTION [None]
  - DELIRIUM [None]
  - PERSECUTORY DELUSION [None]
  - DECREASED APPETITE [None]
  - PROSTATITIS [None]
  - BRAIN DEATH [None]
  - VISUAL IMPAIRMENT [None]
  - CONFUSIONAL STATE [None]
  - CARDIAC ARREST [None]
  - VENOUS THROMBOSIS [None]
  - PULMONARY EMBOLISM [None]
  - BLOOD PRESSURE DECREASED [None]
  - HYPOXIC-ISCHAEMIC ENCEPHALOPATHY [None]
  - MALAISE [None]
  - AGGRESSION [None]
  - CHEST PAIN [None]
  - RASH [None]
  - HAEMOGLOBIN DECREASED [None]
  - CARDIO-RESPIRATORY ARREST [None]
  - PULMONARY ARTERY THROMBOSIS [None]
